FAERS Safety Report 4534876-4 (Version None)
Quarter: 2004Q4

REPORT INFORMATION
  Report Type: 
  Country: None (occurrence: None)
  Receive Date: 20041222
  Receipt Date: 20040525
  Transmission Date: 20050328
  Serious: No
  Sender: FDA-Public Use
  Company Number: US-BRISTOL-MYERS SQUIBB COMPANY-12595930

PATIENT
  Age: 65 Year
  Sex: Male

DRUGS (2)
  1. PRAVACHOL [Suspect]
     Indication: BLOOD CHOLESTEROL INCREASED
     Dosage: INITAL DOSE WAS 40MG DAILY
     Route: 048
     Dates: end: 20040418
  2. MONOPRIL [Concomitant]

REACTIONS (4)
  - FATIGUE [None]
  - PAIN IN EXTREMITY [None]
  - SWELLING [None]
  - WEIGHT INCREASED [None]
